FAERS Safety Report 4960271-X (Version None)
Quarter: 2006Q2

REPORT INFORMATION
  Report Type: 
  Country: None (occurrence: None)
  Receive Date: 20060403
  Receipt Date: 20060313
  Transmission Date: 20061013
  Serious: Yes (Death)
  Sender: FDA-Public Use
  Company Number: US-BOEHRINGER INGELHEIM PHARMACEUTICALS, INC.-2006-BP-02810BP

PATIENT
  Sex: Male

DRUGS (6)
  1. SPIRIVA [Suspect]
     Indication: CHRONIC OBSTRUCTIVE PULMONARY DISEASE
     Route: 055
     Dates: start: 20060216, end: 20060228
  2. SPIRIVA [Suspect]
     Indication: EMPHYSEMA
  3. ZOLOFT [Concomitant]
     Route: 048
     Dates: start: 20040101
  4. ATROVENT [Concomitant]
     Route: 055
     Dates: start: 20040101
  5. ALBUTEROL [Concomitant]
     Route: 055
     Dates: start: 20040101
  6. SEREVENT [Concomitant]
     Route: 055
     Dates: start: 20040101

REACTIONS (2)
  - EMPHYSEMA [None]
  - SUDDEN DEATH [None]
